FAERS Safety Report 5125351-7 (Version None)
Quarter: 2006Q4

REPORT INFORMATION
  Report Type: 
  Country: None (occurrence: None)
  Receive Date: 20061011
  Receipt Date: 20061006
  Transmission Date: 20070319
  Serious: Yes (Hospitalization)
  Sender: FDA-Public Use
  Company Number: US-MERCK-0610USA04671

PATIENT
  Age: 74 Year
  Sex: Male

DRUGS (9)
  1. PROSCAR [Suspect]
     Indication: PROSTATITIS
     Route: 048
     Dates: start: 20060710, end: 20060101
  2. PROSCAR [Suspect]
     Route: 048
     Dates: start: 20060101
  3. PROSCAR [Suspect]
     Indication: BENIGN PROSTATIC HYPERPLASIA
     Route: 048
     Dates: start: 20060710, end: 20060101
  4. PROSCAR [Suspect]
     Route: 048
     Dates: start: 20060101
  5. FLOMAX [Suspect]
     Indication: PROSTATITIS
     Route: 048
     Dates: start: 20060710
  6. FLOMAX [Suspect]
     Indication: BENIGN PROSTATIC HYPERPLASIA
     Route: 048
     Dates: start: 20060710
  7. LIDEX [Concomitant]
     Route: 065
  8. PREVACID [Concomitant]
     Route: 065
  9. LIPITOR [Concomitant]
     Route: 065

REACTIONS (10)
  - CONTUSION [None]
  - DIZZINESS [None]
  - ELECTROCARDIOGRAM QRS COMPLEX PROLONGED [None]
  - FALL [None]
  - HYPOTENSION [None]
  - ORTHOSTATIC HYPOTENSION [None]
  - PLEURITIC PAIN [None]
  - RIB FRACTURE [None]
  - SYNCOPE [None]
  - WRONG TECHNIQUE IN DRUG USAGE PROCESS [None]
